FAERS Safety Report 21584728 (Version 1)
Quarter: 2022Q4

REPORT INFORMATION
  Report Type: Report from Study
  Country: US (occurrence: US)
  Receive Date: 20221111
  Receipt Date: 20221111
  Transmission Date: 20230113
  Serious: Yes (Other)
  Sender: FDA-Public Use
  Company Number: US-JNJFOC-20221112626

PATIENT

DRUGS (31)
  1. REMICADE [Suspect]
     Active Substance: INFLIXIMAB
     Indication: Rheumatoid arthritis
     Route: 041
  2. REMICADE [Suspect]
     Active Substance: INFLIXIMAB
     Indication: Colitis ulcerative
  3. REMICADE [Suspect]
     Active Substance: INFLIXIMAB
     Indication: Crohn^s disease
  4. REMICADE [Suspect]
     Active Substance: INFLIXIMAB
     Indication: Psoriasis
  5. REMICADE [Suspect]
     Active Substance: INFLIXIMAB
     Indication: Ankylosing spondylitis
  6. REMICADE [Suspect]
     Active Substance: INFLIXIMAB
     Indication: Adverse reaction
  7. INTERFERON BETA-1A [Suspect]
     Active Substance: INTERFERON BETA-1A
     Indication: Rheumatoid arthritis
     Route: 065
  8. INTERFERON BETA-1A [Suspect]
     Active Substance: INTERFERON BETA-1A
     Indication: Colitis ulcerative
  9. INTERFERON BETA-1A [Suspect]
     Active Substance: INTERFERON BETA-1A
     Indication: Crohn^s disease
  10. INTERFERON BETA-1A [Suspect]
     Active Substance: INTERFERON BETA-1A
     Indication: Psoriasis
  11. INTERFERON BETA-1A [Suspect]
     Active Substance: INTERFERON BETA-1A
     Indication: Ankylosing spondylitis
  12. INTERFERON BETA-1A [Suspect]
     Active Substance: INTERFERON BETA-1A
     Indication: Adverse reaction
  13. ADALIMUMAB [Suspect]
     Active Substance: ADALIMUMAB
     Indication: Lung neoplasm malignant
     Route: 065
  14. ADALIMUMAB [Suspect]
     Active Substance: ADALIMUMAB
     Indication: Gastrointestinal carcinoma
  15. ADALIMUMAB [Suspect]
     Active Substance: ADALIMUMAB
     Indication: Glioblastoma
  16. ADALIMUMAB [Suspect]
     Active Substance: ADALIMUMAB
     Indication: Breast cancer
  17. ADALIMUMAB [Suspect]
     Active Substance: ADALIMUMAB
     Indication: Ovarian cancer
  18. ADALIMUMAB [Suspect]
     Active Substance: ADALIMUMAB
     Indication: Malignant melanoma
  19. ETANERCEPT [Suspect]
     Active Substance: ETANERCEPT
     Indication: Renal failure
     Route: 065
  20. ETANERCEPT [Suspect]
     Active Substance: ETANERCEPT
     Indication: Adverse reaction
  21. NATALIZUMAB [Suspect]
     Active Substance: NATALIZUMAB
     Indication: Mental disorder
     Route: 065
  22. NATALIZUMAB [Suspect]
     Active Substance: NATALIZUMAB
     Indication: Schizophrenia
  23. NATALIZUMAB [Suspect]
     Active Substance: NATALIZUMAB
     Indication: Adverse reaction
  24. CLOZAPINE [Suspect]
     Active Substance: CLOZAPINE
     Indication: Rheumatoid arthritis
     Route: 065
  25. CLOZAPINE [Suspect]
     Active Substance: CLOZAPINE
     Indication: Psoriasis
  26. CLOZAPINE [Suspect]
     Active Substance: CLOZAPINE
     Indication: Adverse reaction
  27. CLOZAPINE [Suspect]
     Active Substance: CLOZAPINE
     Indication: Ankylosing spondylitis
  28. BEVACIZUMAB [Suspect]
     Active Substance: BEVACIZUMAB
     Indication: Multiple sclerosis
     Route: 065
  29. BEVACIZUMAB [Suspect]
     Active Substance: BEVACIZUMAB
     Indication: Adverse reaction
  30. CALCIUM CHLORIDE [Suspect]
     Active Substance: CALCIUM CHLORIDE
     Indication: Psoriasis
     Route: 065
  31. CALCIUM CHLORIDE [Suspect]
     Active Substance: CALCIUM CHLORIDE
     Indication: Adverse reaction

REACTIONS (2)
  - Appendicitis perforated [Unknown]
  - Diverticulitis [Unknown]
